FAERS Safety Report 5331122-9 (Version None)
Quarter: 2007Q2

REPORT INFORMATION
  Report Type: 
  Country: None (occurrence: None)
  Receive Date: 20070517
  Receipt Date: 20070517
  Transmission Date: 20071010
  Serious: Yes (Other)
  Sender: FDA-Public Use
  Company Number: None

PATIENT

DRUGS (2)
  1. ALBUTEROL SULFATE AND IPRATROPIU 0.083% CARDINAL HEALTH FOR COBALT LAB [Suspect]
     Dosage: 1 VIAL 6 TIMES A DAY INHAL
     Route: 055
  2. IPRATROPIUM BROMIDE 0.02% CARDINAL HEALTH FOR COBALT LABORAT [Suspect]
     Dosage: 1 VIAL 6 TIMES A DAY INHAL
     Route: 055

REACTIONS (2)
  - CIRCUMSTANCE OR INFORMATION CAPABLE OF LEADING TO MEDICATION ERROR [None]
  - PHARMACEUTICAL PRODUCT COMPLAINT [None]
